FAERS Safety Report 7044446-4 (Version None)
Quarter: 2010Q4

REPORT INFORMATION
  Report Type: 
  Country: None (occurrence: None)
  Receive Date: 20101008
  Receipt Date: 20101008
  Transmission Date: 20110411
  Serious: No
  Sender: FDA-Public Use
  Company Number: None

PATIENT
  Age: 52 Year
  Sex: Female
  Weight: 57.1532 kg

DRUGS (3)
  1. ALPRAZOLAM [Suspect]
     Indication: ANXIETY
     Dosage: 1 MG, 3 TIMES A DAY
     Dates: start: 20030427, end: 20101008
  2. ALPRAZOLAM [Suspect]
     Indication: PANIC DISORDER
     Dosage: 1 MG, 3 TIMES A DAY
     Dates: start: 20030427, end: 20101008
  3. ALPRAZOLAM [Suspect]
     Dates: start: 20030427, end: 20101008

REACTIONS (4)
  - DRUG INEFFECTIVE [None]
  - MALAISE [None]
  - PRODUCT SUBSTITUTION ISSUE [None]
  - TREMOR [None]
